FAERS Safety Report 20548711 (Version 3)
Quarter: 2022Q3

REPORT INFORMATION
  Report Type: Spontaneous
  Country: US (occurrence: US)
  Receive Date: 20220303
  Receipt Date: 20220715
  Transmission Date: 20221027
  Serious: Yes (Hospitalization, Other)
  Sender: FDA-Public Use
  Company Number: US-VERTEX PHARMACEUTICALS-2021-019005

PATIENT
  Sex: Male

DRUGS (25)
  1. TRIKAFTA [Suspect]
     Active Substance: ELEXACAFTOR\IVACAFTOR\TEZACAFTOR
     Indication: Cystic fibrosis
     Dosage: 2 ORANGE TABS AM, 1 BLUE TAB PM
     Route: 048
     Dates: start: 20200509, end: 2020
  2. TRIKAFTA [Suspect]
     Active Substance: ELEXACAFTOR\IVACAFTOR\TEZACAFTOR
     Dosage: 2 ORANGE TABS ONE MORNING, 1 BLUE TAB NEXT MORNING, NO EVENING DOSES
     Route: 048
     Dates: start: 20201030, end: 20211201
  3. TRIKAFTA [Suspect]
     Active Substance: ELEXACAFTOR\IVACAFTOR\TEZACAFTOR
     Dosage: 1 ORANGE TAB ONCE DAILY, REDUCED
     Route: 048
     Dates: start: 20220507
  4. ZOFRAN [Concomitant]
     Active Substance: ONDANSETRON HYDROCHLORIDE
  5. ZENPEP [Concomitant]
     Active Substance: PANCRELIPASE AMYLASE\PANCRELIPASE LIPASE\PANCRELIPASE PROTEASE
     Dosage: 40K
  6. URSODIOL [Concomitant]
     Active Substance: URSODIOL
     Dosage: 300MG
  7. SIVEXTRO [Concomitant]
     Active Substance: TEDIZOLID PHOSPHATE
  8. PROGRAF [Concomitant]
     Active Substance: TACROLIMUS
  9. PREVYMIS [Concomitant]
     Active Substance: LETERMOVIR
  10. PREDNISONE [Concomitant]
     Active Substance: PREDNISONE
  11. CLARITIN [Concomitant]
     Active Substance: LORATADINE
  12. PEPCID [Concomitant]
     Active Substance: FAMOTIDINE
  13. NEXIUM [Concomitant]
     Active Substance: ESOMEPRAZOLE MAGNESIUM
  14. MEPRON [Concomitant]
     Active Substance: ATOVAQUONE
  15. LOPERAMIDE [Concomitant]
     Active Substance: LOPERAMIDE
  16. LOMOTIL [Concomitant]
     Active Substance: ATROPINE SULFATE\DIPHENOXYLATE HYDROCHLORIDE
  17. HUMULINE [Concomitant]
  18. HUMALOG [Concomitant]
     Active Substance: INSULIN LISPRO
  19. BUDESONIDE [Concomitant]
     Active Substance: BUDESONIDE
  20. AVYCAZ [Concomitant]
     Active Substance: AVIBACTAM SODIUM\CEFTAZIDIME
  21. VITAMIN D3 [Concomitant]
     Active Substance: CHOLECALCIFEROL
  22. VITAMIN B CO [Concomitant]
  23. DIFLUCAN [Concomitant]
     Active Substance: FLUCONAZOLE
  24. LIALDA [Concomitant]
     Active Substance: MESALAMINE
  25. CODEINE [Concomitant]
     Active Substance: CODEINE

REACTIONS (11)
  - Drug-induced liver injury [Unknown]
  - Hepatic enzyme increased [Recovering/Resolving]
  - Blood urine present [Unknown]
  - Glucose urine present [Unknown]
  - Leukocytosis [Unknown]
  - Constipation [Unknown]
  - Chromaturia [Unknown]
  - Hepatic cancer [Recovering/Resolving]
  - Abdominal pain [Unknown]
  - Blood alkaline phosphatase increased [Not Recovered/Not Resolved]
  - Sinus congestion [Recovered/Resolved]

NARRATIVE: CASE EVENT DATE: 20210101
